FAERS Safety Report 25715677 (Version 1)
Quarter: 2025Q3

REPORT INFORMATION
  Report Type: Other
  Country: US (occurrence: US)
  Receive Date: 20250822
  Receipt Date: 20250822
  Transmission Date: 20251021
  Serious: Yes (Other)
  Sender: ANI
  Company Number: US-ANIPHARMA-024172

PATIENT
  Sex: Male

DRUGS (19)
  1. VALPROIC ACID [Suspect]
     Active Substance: VALPROIC ACID
     Indication: Seizure
  2. AMITRIPTYLINE [Suspect]
     Active Substance: AMITRIPTYLINE
     Indication: Headache
  3. NORTRIPTYLINE [Suspect]
     Active Substance: NORTRIPTYLINE
     Indication: Headache
  4. METOPROLOL [Concomitant]
     Active Substance: METOPROLOL
     Indication: Hypertension
  5. LAMOTRIGINE [Concomitant]
     Active Substance: LAMOTRIGINE
     Indication: Seizure
  6. ACETAMINOPHEN [Concomitant]
     Active Substance: ACETAMINOPHEN
     Indication: Headache
  7. MAGNESIUM [Concomitant]
     Active Substance: MAGNESIUM
     Indication: Headache
  8. RIBOFLAVIN [Concomitant]
     Active Substance: RIBOFLAVIN
     Indication: Headache
  9. TANACETUM PARTHENIUM [Concomitant]
     Active Substance: TANACETUM PARTHENIUM
     Indication: Headache
  10. ERENUMAB [Concomitant]
     Active Substance: ERENUMAB
     Indication: Headache
  11. Butterbur [Concomitant]
     Indication: Headache
  12. Butterbur [Concomitant]
     Indication: Subarachnoid haemorrhage
  13. AMITRIPTYLINE [Suspect]
     Active Substance: AMITRIPTYLINE
     Indication: Subarachnoid haemorrhage
  14. NORTRIPTYLINE [Suspect]
     Active Substance: NORTRIPTYLINE
     Indication: Subarachnoid haemorrhage
  15. MAGNESIUM [Concomitant]
     Active Substance: MAGNESIUM
     Indication: Subarachnoid haemorrhage
  16. RIBOFLAVIN [Concomitant]
     Active Substance: RIBOFLAVIN
     Indication: Subarachnoid haemorrhage
  17. TANACETUM PARTHENIUM [Concomitant]
     Active Substance: TANACETUM PARTHENIUM
     Indication: Subarachnoid haemorrhage
  18. ACETAMINOPHEN [Concomitant]
     Active Substance: ACETAMINOPHEN
     Indication: Subarachnoid haemorrhage
  19. ERENUMAB [Concomitant]
     Active Substance: ERENUMAB
     Indication: Subarachnoid haemorrhage

REACTIONS (5)
  - Postural tremor [Unknown]
  - Urinary retention [Unknown]
  - Fatigue [Unknown]
  - Dry mouth [Unknown]
  - Off label use [Unknown]
